FAERS Safety Report 13291069 (Version 1)
Quarter: 2017Q1

REPORT INFORMATION
  Report Type: Spontaneous
  Country: US (occurrence: US)
  Receive Date: 20170302
  Receipt Date: 20170302
  Transmission Date: 20170428
  Serious: No
  Sender: FDA-Public Use
  Company Number: US-BAYER-2017-040439

PATIENT
  Age: 87 Year
  Sex: Female
  Weight: 73 kg

DRUGS (6)
  1. LEVOTHYROXINE. [Concomitant]
     Active Substance: LEVOTHYROXINE
  2. ALEVE PM [Suspect]
     Active Substance: DIPHENHYDRAMINE HYDROCHLORIDE\NAPROXEN SODIUM
     Indication: PAIN
     Route: 048
     Dates: start: 201702
  3. GABAPENTIN. [Concomitant]
     Active Substance: GABAPENTIN
  4. GLIPIZIDE. [Concomitant]
     Active Substance: GLIPIZIDE
  5. PREDNISONE. [Concomitant]
     Active Substance: PREDNISONE
  6. HYDROCODONE COMPOUND [Concomitant]
     Active Substance: HOMATROPINE METHYLBROMIDE\HYDROCODONE BITARTRATE

REACTIONS (2)
  - Underdose [Unknown]
  - Initial insomnia [Unknown]

NARRATIVE: CASE EVENT DATE: 201702
